FAERS Safety Report 14145136 (Version 1)
Quarter: 2017Q4

REPORT INFORMATION
  Report Type: Report from Study
  Country: US (occurrence: US)
  Receive Date: 20171031
  Receipt Date: 20171031
  Transmission Date: 20180321
  Serious: Yes (Other)
  Sender: FDA-Public Use
  Company Number: US-SA-2017SA180370

PATIENT
  Age: 32 Year
  Sex: Male
  Weight: 122.47 kg

DRUGS (6)
  1. LEMTRADA [Suspect]
     Active Substance: ALEMTUZUMAB
     Indication: MULTIPLE SCLEROSIS
     Route: 041
     Dates: start: 20161219, end: 20161221
  2. NAPROXEN. [Concomitant]
     Active Substance: NAPROXEN
     Indication: ANTIVIRAL PROPHYLAXIS
     Route: 065
     Dates: start: 201512
  3. VALACICLOVIR [Concomitant]
     Active Substance: VALACYCLOVIR HYDROCHLORIDE
     Indication: ANTIVIRAL PROPHYLAXIS
     Route: 065
  4. HYDROXYZINE [Concomitant]
     Active Substance: HYDROXYZINE HYDROCHLORIDE
     Indication: INFUSION RELATED REACTION
     Dosage: DOSE: 25-50 MG
     Route: 065
     Dates: start: 20161219, end: 20161226
  5. VITAMIN D [Concomitant]
     Active Substance: CHOLECALCIFEROL
     Indication: SUPPLEMENTATION THERAPY
     Route: 065
  6. NAPROXEN. [Concomitant]
     Active Substance: NAPROXEN
     Indication: PAIN
     Route: 065
     Dates: start: 201512

REACTIONS (6)
  - Contusion [Unknown]
  - Skin hyperpigmentation [Not Recovered/Not Resolved]
  - Dermatitis [Not Recovered/Not Resolved]
  - Immune thrombocytopenic purpura [Unknown]
  - Skin lesion [Not Recovered/Not Resolved]
  - Rash [Recovered/Resolved]

NARRATIVE: CASE EVENT DATE: 20170101
